FAERS Safety Report 18371415 (Version 1)
Quarter: 2020Q4

REPORT INFORMATION
  Report Type: Spontaneous
  Country: US (occurrence: US)
  Receive Date: 20201012
  Receipt Date: 20201012
  Transmission Date: 20210114
  Serious: Yes (Other)
  Sender: FDA-Public Use
  Company Number: US-AMERICAN REGENT INC-2020002103

PATIENT
  Age: 64 Year
  Sex: Male
  Weight: 92.8 kg

DRUGS (14)
  1. NOREPINEPHRINE. [Suspect]
     Active Substance: NOREPINEPHRINE
     Dosage: 0.02 UG/KG/MIN
     Route: 042
  2. ASCORBIC ACID INJECTION, USP (0206-50K) [Concomitant]
     Active Substance: ASCORBIC ACID
     Indication: VASOPLEGIA SYNDROME
     Dosage: 1.5 GRAM EVERY 6 HOURS
     Route: 042
  3. VASOPRESSIN INJECTION, USP [Suspect]
     Active Substance: VASOPRESSIN
     Dosage: 0.04 U/MIN
     Route: 042
  4. NOREPINEPHRINE. [Suspect]
     Active Substance: NOREPINEPHRINE
     Indication: VASOPLEGIA SYNDROME
     Dosage: UNK; REQUIREMENTS CONTINUED TO RISE
     Route: 042
  5. EPINEPHRINE INJECTION, USP (0517-1071-01) [Suspect]
     Active Substance: EPINEPHRINE
     Indication: VASOPLEGIA SYNDROME
     Dosage: 0.05 UG/KG/MIN
     Route: 042
  6. EPINEPHRINE INJECTION, USP (0517-1071-01) [Suspect]
     Active Substance: EPINEPHRINE
     Dosage: 0.06 UG/KG/MIN
     Route: 042
  7. VASOPRESSIN INJECTION, USP [Suspect]
     Active Substance: VASOPRESSIN
     Dosage: 0.03 U/MIN
     Route: 042
  8. NOREPINEPHRINE. [Suspect]
     Active Substance: NOREPINEPHRINE
     Dosage: 0.15 UG/KG/MIN
     Route: 042
  9. NOREPINEPHRINE. [Suspect]
     Active Substance: NOREPINEPHRINE
     Dosage: 0.08 UG/KG/MIN
     Route: 042
  10. HYDROCORTISONE. [Concomitant]
     Active Substance: HYDROCORTISONE
     Indication: VASOPLEGIA SYNDROME
     Dosage: UNK, STRESS DOSE
     Route: 065
  11. VASOPRESSIN INJECTION, USP [Suspect]
     Active Substance: VASOPRESSIN
     Indication: VASOPLEGIA SYNDROME
     Dosage: 0.04 U/MIN
     Route: 042
  12. METHYLENE BLUE. [Concomitant]
     Active Substance: METHYLENE BLUE
     Indication: VASOPLEGIA SYNDROME
     Dosage: 100 MILLIGRAM
     Route: 042
  13. NOREPINEPHRINE. [Suspect]
     Active Substance: NOREPINEPHRINE
     Dosage: 0.2 UG/KG/MIN
     Route: 042
  14. HYDROXOCOBALAMIN [Concomitant]
     Active Substance: HYDROXOCOBALAMIN
     Indication: VASOPLEGIA SYNDROME
     Dosage: 5 GRAM
     Route: 042

REACTIONS (4)
  - Vasoplegia syndrome [Recovered/Resolved]
  - Drug ineffective for unapproved indication [Recovered/Resolved]
  - Drug ineffective [Recovered/Resolved]
  - Product use in unapproved indication [Unknown]
